FAERS Safety Report 12584150 (Version 1)
Quarter: 2016Q3

REPORT INFORMATION
  Report Type: Spontaneous
  Country: BR (occurrence: BR)
  Receive Date: 20160722
  Receipt Date: 20160722
  Transmission Date: 20161109
  Serious: Yes (Other)
  Sender: FDA-Public Use
  Company Number: BR-SHIRE-BR201608857

PATIENT
  Age: 10 Year
  Sex: Male
  Weight: 42 kg

DRUGS (2)
  1. VENVANSE [Suspect]
     Active Substance: LISDEXAMFETAMINE DIMESYLATE
     Indication: ATTENTION DEFICIT/HYPERACTIVITY DISORDER
     Dosage: 50 MG, 1X/DAY:QD
     Route: 048
     Dates: start: 201501, end: 201605
  2. VENVANSE [Suspect]
     Active Substance: LISDEXAMFETAMINE DIMESYLATE
     Dosage: UNK, UNKNOWN (FRACTIONATE THE DOSE OF 50 MG CAPSULES TO 15 MG IN THE MORNING)
     Route: 048
     Dates: start: 201605

REACTIONS (4)
  - Obsessive-compulsive disorder [Not Recovered/Not Resolved]
  - Tic [Not Recovered/Not Resolved]
  - Wrong technique in product usage process [Unknown]
  - Autism [Not Recovered/Not Resolved]

NARRATIVE: CASE EVENT DATE: 201604
